FAERS Safety Report 18793407 (Version 1)
Quarter: 2021Q1

REPORT INFORMATION
  Report Type: Spontaneous
  Country: US (occurrence: US)
  Receive Date: 20210126
  Receipt Date: 20210126
  Transmission Date: 20210419
  Serious: Yes (Disabling)
  Sender: FDA-Public Use
  Company Number: None

PATIENT
  Age: 67 Year
  Sex: Male
  Weight: 77.85 kg

DRUGS (5)
  1. DIAZEPAM 5 MG TABLET, GENERIC FOR: VALIUM, RX:1012781 [Suspect]
     Active Substance: DIAZEPAM
     Indication: ANXIETY
     Dosage: ?          QUANTITY:90 TABLET(S);?
     Route: 048
  2. NATURES PLUS^S SPIRU?TEIN VITAMINS + MINERALS [Concomitant]
  3. ALACER CORP^S EMERGEN?C SUPPLEMENT [Concomitant]
  4. LISINOPRIL. [Concomitant]
     Active Substance: LISINOPRIL
  5. DIAZEPAM 5 MG TABLET, GENERIC FOR: VALIUM, RX:1012781 [Suspect]
     Active Substance: DIAZEPAM
     Indication: POST-TRAUMATIC STRESS DISORDER
     Dosage: ?          QUANTITY:90 TABLET(S);?
     Route: 048

REACTIONS (4)
  - Suspected counterfeit product [None]
  - Drug ineffective [None]
  - Product taste abnormal [None]
  - Product physical issue [None]

NARRATIVE: CASE EVENT DATE: 20160615
